FAERS Safety Report 4456042-3 (Version None)
Quarter: 2004Q3

REPORT INFORMATION
  Report Type: 
  Country: None (occurrence: None)
  Receive Date: 20040831
  Receipt Date: 20040726
  Transmission Date: 20050211
  Serious: No
  Sender: FDA-Public Use
  Company Number: FABR-10693

PATIENT
  Age: 39 Year
  Sex: Male
  Weight: 77 kg

DRUGS (7)
  1. FABRAZYME [Suspect]
     Indication: FABRY'S DISEASE
     Dosage: 105 MG Q2WKS IV
     Route: 042
     Dates: start: 20030707
  2. LIPITOR [Concomitant]
  3. TEGRETOL [Concomitant]
  4. LASIX [Concomitant]
  5. ALTACE [Concomitant]
  6. PHOSLO [Concomitant]
  7. ASPIRIN [Concomitant]

REACTIONS (2)
  - HYPOAESTHESIA [None]
  - PARAESTHESIA [None]
